FAERS Safety Report 10474663 (Version 1)
Quarter: 2014Q3

REPORT INFORMATION
  Report Type: Spontaneous
  Country: US (occurrence: US)
  Receive Date: 20140925
  Receipt Date: 20140925
  Transmission Date: 20150326
  Serious: Yes (Death, Other)
  Sender: FDA-Public Use
  Company Number: US-CIPLA LTD.-2014US01446

PATIENT

DRUGS (6)
  1. CARBOPLATIN. [Suspect]
     Active Substance: CARBOPLATIN
  2. ETOPOSIDE. [Suspect]
     Active Substance: ETOPOSIDE
  3. VINCRISTINE [Suspect]
     Active Substance: VINCRISTINE
     Indication: B-CELL LYMPHOMA
     Dosage: ONE DOSE OF 2 MG
  4. RITUXIMAB [Suspect]
     Active Substance: RITUXIMAB
     Indication: B-CELL LYMPHOMA
     Dosage: ONE DOSE OF 375 MG/M2
  5. GEMCITABINE [Suspect]
     Active Substance: GEMCITABINE\GEMCITABINE HYDROCHLORIDE
     Indication: B-CELL LYMPHOMA
     Dosage: ONE DOSE OF 1000 MG/M2
  6. IFOSFAMIDE. [Suspect]
     Active Substance: IFOSFAMIDE

REACTIONS (6)
  - Infection [Fatal]
  - Cardiac tamponade [Recovered/Resolved]
  - Sepsis [Unknown]
  - Disease progression [Unknown]
  - Recall phenomenon [Unknown]
  - Deep vein thrombosis [Unknown]

NARRATIVE: CASE EVENT DATE: 200305
